FAERS Safety Report 9885576 (Version 1)
Quarter: 2014Q1

REPORT INFORMATION
  Report Type: Spontaneous
  Country: US (occurrence: None)
  Receive Date: 20140206
  Receipt Date: 20140206
  Transmission Date: 20141002
  Serious: Yes (Other)
  Sender: FDA-Public Use
  Company Number: 2014HINLIT0093

PATIENT
  Age: 83 Year
  Sex: Female
  Weight: 66 kg

DRUGS (4)
  1. ESCITALOPRAM [Suspect]
     Indication: DEPRESSION
  2. GLIBENCLAMIDE [Concomitant]
  3. ENALAPRIL + HYDROCHLOROTIAZIDE [Concomitant]
  4. DOXAZOSIN [Concomitant]

REACTIONS (1)
  - Hyperglycaemia [None]
